FAERS Safety Report 6329676-9 (Version None)
Quarter: 2009Q3

REPORT INFORMATION
  Report Type: 
  Country: None (occurrence: None)
  Receive Date: 20090826
  Receipt Date: 20090819
  Transmission Date: 20100115
  Serious: Yes (Hospitalization)
  Sender: FDA-Public Use
  Company Number: US-SANOFI-SYNTHELABO-A03200903665

PATIENT
  Age: 75 Year
  Sex: Female

DRUGS (7)
  1. PLAVIX [Suspect]
     Indication: PERIPHERAL VASCULAR DISORDER
     Dosage: UNK
     Route: 048
     Dates: start: 20090801
  2. BENADRYL [Concomitant]
     Indication: PROPHYLAXIS
     Dosage: UNK
     Route: 065
     Dates: start: 20090801
  3. ASPIRIN [Concomitant]
     Indication: DRUG USE FOR UNKNOWN INDICATION
     Route: 048
     Dates: end: 20090801
  4. PREDNISONE TAB [Concomitant]
     Indication: CHRONIC OBSTRUCTIVE PULMONARY DISEASE
     Dosage: UNK
     Route: 065
  5. ALBUTEROL [Concomitant]
     Indication: CHRONIC OBSTRUCTIVE PULMONARY DISEASE
     Dosage: UNK
     Route: 065
  6. MUCINEX [Suspect]
     Indication: PROPHYLAXIS
     Dosage: TOOK BEFORE AND AFTER CATHETERIZATION UNK
     Route: 065
     Dates: start: 20090801, end: 20090801
  7. MUCINEX [Suspect]
     Dosage: UNK
     Route: 065
     Dates: start: 20090818

REACTIONS (7)
  - COUGH [None]
  - DYSPNOEA [None]
  - EOSINOPHILIC PNEUMONIA [None]
  - HAEMOPTYSIS [None]
  - OXYGEN SATURATION DECREASED [None]
  - PULMONARY HAEMORRHAGE [None]
  - WHEEZING [None]
